FAERS Safety Report 9176639 (Version 1)
Quarter: 2013Q1

REPORT INFORMATION
  Report Type: Spontaneous
  Country: US (occurrence: None)
  Receive Date: 20130320
  Receipt Date: 20130320
  Transmission Date: 20140127
  Serious: Yes (Other)
  Sender: FDA-Public Use
  Company Number: None

PATIENT
  Age: 47 Year
  Sex: Female
  Weight: 40 kg

DRUGS (1)
  1. REMERON [Suspect]
     Indication: ANXIETY
     Route: 048
     Dates: start: 201302, end: 201303

REACTIONS (2)
  - Muscular weakness [None]
  - Abdominal discomfort [None]
